FAERS Safety Report 7051308-5 (Version None)
Quarter: 2010Q4

REPORT INFORMATION
  Report Type: 
  Country: None (occurrence: None)
  Receive Date: 20101019
  Receipt Date: 20100625
  Transmission Date: 20110411
  Serious: Yes (Other)
  Sender: FDA-Public Use
  Company Number: US-ASTRAZENECA-2010SE29878

PATIENT

DRUGS (2)
  1. MERREM [Suspect]
     Indication: INFECTION
     Route: 042
  2. DEPAKOTE [Concomitant]

REACTIONS (1)
  - CONVULSION [None]
